FAERS Safety Report 15239784 (Version 1)
Quarter: 2018Q3

REPORT INFORMATION
  Report Type: Spontaneous
  Country: US (occurrence: US)
  Receive Date: 20180710
  Receipt Date: 20180710
  Transmission Date: 20181010
  Serious: No
  Sender: FDA-Public Use
  Company Number: None

PATIENT
  Age: 39 Year
  Sex: Female
  Weight: 68.04 kg

DRUGS (1)
  1. SKYLA [Suspect]
     Active Substance: LEVONORGESTREL

REACTIONS (7)
  - Infection [None]
  - Acne [None]
  - Device dislocation [None]
  - Flank pain [None]
  - Discomfort [None]
  - Dyspareunia [None]
  - Haemorrhage [None]
